FAERS Safety Report 12116136 (Version 1)
Quarter: 2016Q1

REPORT INFORMATION
  Report Type: Spontaneous
  Country: US (occurrence: US)
  Receive Date: 20160225
  Receipt Date: 20160225
  Transmission Date: 20160526
  Serious: No
  Sender: FDA-Public Use
  Company Number: US-ACTAVIS-2015-17421

PATIENT
  Sex: Female

DRUGS (1)
  1. DULOXETINE HYDROCHLORIDE (AELLC) [Suspect]
     Active Substance: DULOXETINE HYDROCHLORIDE
     Indication: PRODUCT USED FOR UNKNOWN INDICATION
     Dosage: 60 MG, UNKNOWN
     Route: 065
     Dates: start: 20150424

REACTIONS (8)
  - Agitation [Recovering/Resolving]
  - Hyperhidrosis [Recovering/Resolving]
  - Drug withdrawal syndrome [Unknown]
  - Nightmare [Recovering/Resolving]
  - Product substitution issue [Unknown]
  - Drug effect incomplete [Unknown]
  - Drug dose omission [Recovering/Resolving]
  - Bruxism [Recovering/Resolving]
